FAERS Safety Report 6743584-0 (Version None)
Quarter: 2010Q2

REPORT INFORMATION
  Report Type: 
  Country: None (occurrence: None)
  Receive Date: 20100527
  Receipt Date: 20100519
  Transmission Date: 20101027
  Serious: Yes (Other)
  Sender: FDA-Public Use
  Company Number: GR-ROCHE-703356

PATIENT
  Age: 22 Month
  Sex: Male
  Weight: 13 kg

DRUGS (4)
  1. OSELTAMIVIR PHOSPHATE [Suspect]
     Indication: H1N1 INFLUENZA
     Dosage: STRENGTH OF PHARMACEUTICAL FORM WAS NOT PROVIDED
     Route: 048
     Dates: start: 20100122, end: 20100428
  2. ACYCLOVIR [Concomitant]
     Route: 042
     Dates: start: 20100122
  3. DEXAMETHASONE [Concomitant]
     Route: 042
     Dates: start: 20100122, end: 20100128
  4. MANNITOL [Concomitant]
     Route: 042
     Dates: start: 20100126, end: 20100201

REACTIONS (1)
  - CONVULSION [None]
